FAERS Safety Report 9100476 (Version 1)
Quarter: 2013Q1

REPORT INFORMATION
  Report Type: Spontaneous
  Country: US (occurrence: US)
  Receive Date: 20130215
  Receipt Date: 20130215
  Transmission Date: 20140127
  Serious: Yes (Other)
  Sender: FDA-Public Use
  Company Number: US-PFIZER INC-2013058203

PATIENT
  Age: 22 Year
  Sex: Male
  Weight: 77.1 kg

DRUGS (6)
  1. NEURONTIN [Suspect]
     Indication: DEPRESSION
     Dosage: TWO CAPSULES OF 300 MG IN THE MORNING AND THREE CAPSULES OF 300 MG AT NIGHT),  2X/DAY)
     Route: 048
     Dates: start: 20121018, end: 20121105
  2. NEURONTIN [Suspect]
     Indication: PANIC DISORDER
  3. NEURONTIN [Suspect]
     Indication: POST-TRAUMATIC STRESS DISORDER
  4. SEROQUEL [Concomitant]
     Indication: DEPRESSION
     Dosage: 200 MG, UNK
  5. SEROQUEL [Concomitant]
     Indication: ANXIETY
  6. SEROQUEL [Concomitant]
     Indication: POST-TRAUMATIC STRESS DISORDER

REACTIONS (2)
  - Thoracic cavity drainage [Unknown]
  - Drug ineffective [Unknown]
